FAERS Safety Report 5690276-5 (Version None)
Quarter: 2008Q1

REPORT INFORMATION
  Report Type: 
  Country: None (occurrence: None)
  Receive Date: 20080331
  Receipt Date: 20080331
  Transmission Date: 20080703
  Serious: Yes (Other)
  Sender: FDA-Public Use
  Company Number: None

PATIENT
  Age: 33 Year
  Sex: Female
  Weight: 57.6068 kg

DRUGS (1)
  1. LUPRON [Suspect]
     Indication: ENDOMETRIOSIS
     Dosage: 1 INJECTION 1 INJ. 6 MO. IM
     Route: 030
     Dates: start: 20010301, end: 20010501

REACTIONS (10)
  - AMNESIA [None]
  - ARTHRALGIA [None]
  - CONDITION AGGRAVATED [None]
  - DRUG INEFFECTIVE [None]
  - DRUG INTOLERANCE [None]
  - INJECTION SITE PAIN [None]
  - MENORRHAGIA [None]
  - NAUSEA [None]
  - PAIN [None]
  - PELVIC PAIN [None]
